FAERS Safety Report 6322983-5 (Version None)
Quarter: 2009Q3

REPORT INFORMATION
  Report Type: 
  Country: None (occurrence: None)
  Receive Date: 20090818
  Receipt Date: 20090129
  Transmission Date: 20100115
  Serious: Yes (Hospitalization)
  Sender: FDA-Public Use
  Company Number: MEDI-0007775

PATIENT
  Age: 23 Month
  Sex: Female
  Weight: 11.1131 kg

DRUGS (3)
  1. SYNAGIS [Suspect]
     Dosage: 161 MG, 1 IN 28 D, INTRAMUSCULAR
     Route: 030
     Dates: start: 20081211, end: 20081211
  2. SYNAGIS [Suspect]
     Dosage: 168 MG, 1 IN 28 D, INTRAMUSCULAR
  3. DEPAKOTE [Concomitant]

REACTIONS (2)
  - RESPIRATORY SYNCYTIAL VIRUS BRONCHIOLITIS [None]
  - WHEEZING [None]
